FAERS Safety Report 7033585-X (Version None)
Quarter: 2010Q4

REPORT INFORMATION
  Report Type: 
  Country: None (occurrence: None)
  Receive Date: 20101007
  Receipt Date: 20101001
  Transmission Date: 20110411
  Serious: Yes (Hospitalization)
  Sender: FDA-Public Use
  Company Number: US-SANOFI-AVENTIS-2010SA052695

PATIENT
  Age: 63 Year
  Sex: Female
  Weight: 112 kg

DRUGS (6)
  1. LANTUS [Suspect]
     Indication: TYPE 2 DIABETES MELLITUS
     Dosage: DOSE:60 UNIT(S)
     Route: 058
     Dates: start: 20070101
  2. OPTICLICK [Suspect]
     Indication: TYPE 2 DIABETES MELLITUS
     Dates: start: 20070101
  3. LOPRESSOR [Concomitant]
     Dosage: ONE TWICE DAILY
  4. VASOTEC [Concomitant]
     Dosage: ONE TWICE DAILY
  5. THYROID PREPARATIONS [Concomitant]
     Dosage: ONE PER DAY
  6. EFFEXOR [Concomitant]
     Dosage: 3 AT BREAKFAST

REACTIONS (2)
  - CONDITION AGGRAVATED [None]
  - LIGAMENT LAXITY [None]
